FAERS Safety Report 6104832-3 (Version None)
Quarter: 2009Q1

REPORT INFORMATION
  Report Type: 
  Country: None (occurrence: None)
  Receive Date: 20090306
  Receipt Date: 20090226
  Transmission Date: 20090719
  Serious: Yes (Other)
  Sender: FDA-Public Use
  Company Number: US-JNJFOC-20090201744

PATIENT
  Sex: Male

DRUGS (5)
  1. RISPERDAL CONSTA [Suspect]
     Indication: DRUG USE FOR UNKNOWN INDICATION
     Route: 030
  2. RISPERDAL [Suspect]
     Indication: DRUG USE FOR UNKNOWN INDICATION
     Route: 048
  3. INDEROL [Concomitant]
     Route: 048
  4. COGENTIN [Concomitant]
     Route: 048
  5. REMERON [Concomitant]
     Route: 048

REACTIONS (5)
  - ASTHMA [None]
  - COUGH [None]
  - LIVER FUNCTION TEST ABNORMAL [None]
  - TONGUE NEOPLASM MALIGNANT STAGE UNSPECIFIED [None]
  - WEIGHT INCREASED [None]
